FAERS Safety Report 5081856-9 (Version None)
Quarter: 2006Q3

REPORT INFORMATION
  Report Type: 
  Country: None (occurrence: None)
  Receive Date: 20060816
  Receipt Date: 20060614
  Transmission Date: 20061208
  Serious: Yes (Other)
  Sender: FDA-Public Use
  Company Number: US-SANOFI-SYNTHELABO-A03200603849

PATIENT
  Sex: Female
  Weight: 108.9 kg

DRUGS (5)
  1. AMBIEN CR [Suspect]
     Indication: INSOMNIA
     Route: 048
     Dates: start: 20060201
  2. CALCIUM GLUCONATE [Concomitant]
     Dosage: UNK
     Route: 048
  3. ZOLOFT [Concomitant]
     Route: 048
  4. LIPITOR [Concomitant]
     Route: 048
  5. VERAPAMIL [Concomitant]
     Route: 048

REACTIONS (7)
  - AMNESIA [None]
  - CONTUSION [None]
  - DYSSTASIA [None]
  - FALL [None]
  - JOINT SPRAIN [None]
  - PAIN [None]
  - SPINAL FRACTURE [None]
